FAERS Safety Report 6536929-8 (Version None)
Quarter: 2010Q1

REPORT INFORMATION
  Report Type: 
  Country: None (occurrence: None)
  Receive Date: 20100105
  Receipt Date: 20091221
  Transmission Date: 20100710
  Serious: Yes (Death)
  Sender: FDA-Public Use
  Company Number: 1000010791

PATIENT
  Age: 30 Year
  Sex: Female

DRUGS (1)
  1. CITALOPRAM HYDROBROMIDE [Suspect]
     Dosage: 5 TO 10 MG (1 IN 1 D)
     Dates: start: 20030101

REACTIONS (2)
  - STATUS EPILEPTICUS [None]
  - SUDDEN DEATH [None]
